FAERS Safety Report 5393757-7 (Version None)
Quarter: 2007Q3

REPORT INFORMATION
  Report Type: 
  Country: None (occurrence: None)
  Receive Date: 20070723
  Receipt Date: 20070712
  Transmission Date: 20080115
  Serious: Yes (Other)
  Sender: FDA-Public Use
  Company Number: US-JNJFOC-20070703512

PATIENT
  Sex: Female
  Weight: 106.6 kg

DRUGS (7)
  1. REMICADE [Suspect]
     Indication: RHEUMATOID ARTHRITIS
     Route: 042
  2. REMICADE [Suspect]
     Indication: CROHN'S DISEASE
     Route: 042
  3. ALPRAZOLAM [Concomitant]
  4. VICODIN [Concomitant]
  5. AMBIEN [Concomitant]
  6. NEXIUM [Concomitant]
  7. METHOTREXATE [Concomitant]

REACTIONS (3)
  - ARTHROPATHY [None]
  - LOCALISED INFECTION [None]
  - NEOPLASM SKIN [None]
